FAERS Safety Report 21276460 (Version 1)
Quarter: 2022Q3

REPORT INFORMATION
  Report Type: Spontaneous
  Country: US (occurrence: US)
  Receive Date: 20220831
  Receipt Date: 20220831
  Transmission Date: 20221027
  Serious: No
  Sender: FDA-Public Use
  Company Number: US-ABBVIE-22K-163-4414338-00

PATIENT
  Sex: Male

DRUGS (2)
  1. HUMIRA [Suspect]
     Active Substance: ADALIMUMAB
     Indication: Product used for unknown indication
     Route: 058
  2. XELJANZ [Suspect]
     Active Substance: TOFACITINIB CITRATE
     Indication: Product used for unknown indication
     Route: 065
     Dates: start: 20220328, end: 202205

REACTIONS (5)
  - Arthralgia [Recovered/Resolved]
  - Mobility decreased [Unknown]
  - Arthralgia [Recovering/Resolving]
  - Gait inability [Recovering/Resolving]
  - Joint swelling [Recovering/Resolving]

NARRATIVE: CASE EVENT DATE: 20220101
